FAERS Safety Report 5345424-3 (Version None)
Quarter: 2007Q2

REPORT INFORMATION
  Report Type: 
  Country: None (occurrence: None)
  Receive Date: 20070601
  Receipt Date: 20070517
  Transmission Date: 20071010
  Serious: Yes (Hospitalization)
  Sender: FDA-Public Use
  Company Number: 2007S1003444

PATIENT
  Age: 46 Year
  Sex: Female
  Weight: 81.6475 kg

DRUGS (5)
  1. CLOZAPINE [Suspect]
     Indication: SCHIZOPHRENIA
     Dosage: 25 MG; TWICE A DAY; ORAL
     Route: 048
     Dates: start: 20040101
  2. CLOZAPINE [Suspect]
     Indication: SCHIZOPHRENIA
     Dosage: 100 MG; TWICE A DAY; ORAL
     Route: 048
     Dates: start: 20040101
  3. COGENTIN [Concomitant]
  4. DEPAKOTE [Concomitant]
  5. AZITHROMYCIN [Concomitant]

REACTIONS (2)
  - GRANULOCYTOPENIA [None]
  - TREATMENT NONCOMPLIANCE [None]
